FAERS Safety Report 9436085 (Version 1)
Quarter: 2013Q3

REPORT INFORMATION
  Report Type: Spontaneous
  Country: PT (occurrence: PT)
  Receive Date: 20130801
  Receipt Date: 20130801
  Transmission Date: 20140515
  Serious: Yes (Other)
  Sender: FDA-Public Use
  Company Number: PHHY2013PT078112

PATIENT
  Age: 36 Year
  Sex: Female

DRUGS (15)
  1. METOCLOPRAMIDE [Suspect]
     Dosage: UNK UKN, UNK
  2. THEOPHYLLINE [Suspect]
     Dosage: UNK UKN, UNK
  3. VALPROIC ACID [Suspect]
     Dosage: UNK UKN, UNK
  4. ONDANSETRON [Suspect]
  5. BUPROPION [Suspect]
     Dosage: 150 MG, QD
  6. AMITRIPTYLINE [Suspect]
     Dosage: 35 MG, QD
  7. QUETIAPINE [Suspect]
     Dosage: UNK UKN, UNK
  8. TOPIRAMATE [Suspect]
     Dosage: UNK UKN, UNK
  9. BETAHISTINE [Suspect]
  10. NSAID^S [Suspect]
     Dosage: UNK UKN, UNK
  11. CORTICOSTEROIDS [Suspect]
     Dosage: UNK UKN, UNK
  12. OPIOIDS [Suspect]
     Dosage: UNK UKN, UNK
  13. ANALGESICS [Suspect]
     Dosage: UNK UKN, UNK
  14. CAFFEINE [Suspect]
     Dosage: UNK UKN, UNK
  15. CINARIZINE [Suspect]
     Dosage: UNK UKN, UNK

REACTIONS (3)
  - Headache [Unknown]
  - Vomiting [Unknown]
  - Drug ineffective [Unknown]
